FAERS Safety Report 6154247-7 (Version None)
Quarter: 2009Q2

REPORT INFORMATION
  Report Type: 
  Country: None (occurrence: None)
  Receive Date: 20090410
  Receipt Date: 20090330
  Transmission Date: 20091009
  Serious: Yes (Hospitalization, Congenital Anomaly)
  Sender: FDA-Public Use
  Company Number: 1-17952736

PATIENT
  Age: 1 Day
  Sex: Female
  Weight: 2.0865 kg

DRUGS (2)
  1. FLUOXETINE [Suspect]
     Indication: OBSESSIVE-COMPULSIVE DISORDER
     Dosage: 20 MG DAILY, TRANSPLACENTAL
     Route: 064
  2. DIAZEPAM [Suspect]
     Indication: OBSESSIVE-COMPULSIVE DISORDER
     Dosage: 10 MG,  TRANSPLACENTAL
     Route: 064

REACTIONS (12)
  - AGITATION NEONATAL [None]
  - CAESAREAN SECTION [None]
  - DRUG WITHDRAWAL SYNDROME NEONATAL [None]
  - FEEDING DISORDER NEONATAL [None]
  - GAZE PALSY [None]
  - HYPERREFLEXIA [None]
  - HYPERTONIA NEONATAL [None]
  - MATERNAL DRUGS AFFECTING FOETUS [None]
  - MICROCEPHALY [None]
  - MILD MENTAL RETARDATION [None]
  - OCULOGYRIC CRISIS [None]
  - VOMITING NEONATAL [None]
